FAERS Safety Report 8876122 (Version 5)
Quarter: 2015Q1

REPORT INFORMATION
  Report Type: Spontaneous
  Country: US (occurrence: US)
  Receive Date: 20121023
  Receipt Date: 20150204
  Transmission Date: 20150721
  Serious: Yes (Hospitalization, Other)
  Sender: FDA-Public Use
  Company Number: US-009507513-1209USA009494

PATIENT
  Sex: Female

DRUGS (3)
  1. FOSAMAX [Suspect]
     Active Substance: ALENDRONATE SODIUM
     Indication: OSTEOPOROSIS PROPHYLAXIS
     Dosage: 70 MG, QW
     Route: 048
     Dates: start: 2006, end: 200807
  2. ALENDRONATE SODIUM. [Suspect]
     Active Substance: ALENDRONATE SODIUM
     Indication: OSTEOPOROSIS PROPHYLAXIS
     Dosage: 70 MG, QW
     Route: 048
     Dates: start: 200807, end: 201104
  3. VITAMINS (UNSPECIFIED) [Concomitant]
     Active Substance: VITAMINS
     Dosage: UNK, BID
     Dates: start: 1990

REACTIONS (20)
  - Intramedullary rod insertion [Unknown]
  - Postoperative fever [Recovered/Resolved]
  - Aortic valve sclerosis [Unknown]
  - Femur fracture [Unknown]
  - Prescribed overdose [Unknown]
  - Atrial fibrillation [Unknown]
  - Dyspnoea [Unknown]
  - Anxiety [Unknown]
  - Dizziness [Unknown]
  - Intramedullary rod insertion [Unknown]
  - Atrial septal defect [Unknown]
  - Haemorrhoids [Unknown]
  - Femur fracture [Unknown]
  - Fall [Unknown]
  - Haemorrhagic anaemia [Recovering/Resolving]
  - Cerebral atrophy [Unknown]
  - Tachycardia [Unknown]
  - Asthenia [Unknown]
  - Paraesthesia [Unknown]
  - Headache [Unknown]

NARRATIVE: CASE EVENT DATE: 20100817
